FAERS Safety Report 7679471-3 (Version None)
Quarter: 2011Q3

REPORT INFORMATION
  Report Type: 
  Country: None (occurrence: None)
  Receive Date: 20110812
  Receipt Date: 20110812
  Transmission Date: 20111222
  Serious: Yes (Hospitalization)
  Sender: FDA-Public Use
  Company Number: None

PATIENT
  Sex: Female
  Weight: 56.8 kg

DRUGS (8)
  1. ALDACTONE [Concomitant]
  2. ASPIRIN [Concomitant]
  3. PLAVIX [Concomitant]
  4. LABETALOL HCL [Concomitant]
  5. HYDRALAZINE HCL [Concomitant]
  6. PRAVACHOL [Concomitant]
  7. LISINOPRIL [Suspect]
     Indication: HYPERTENSION
     Dosage: UNKOWN
     Route: 048
  8. NORVASC [Concomitant]

REACTIONS (6)
  - ANGIOEDEMA [None]
  - SPEECH DISORDER [None]
  - RESPIRATORY DISTRESS [None]
  - SWOLLEN TONGUE [None]
  - SWELLING FACE [None]
  - STRESS [None]
